FAERS Safety Report 13142856 (Version 5)
Quarter: 2017Q2

REPORT INFORMATION
  Report Type: Report from Study
  Country: None (occurrence: AR)
  Receive Date: 20170123
  Receipt Date: 20170614
  Transmission Date: 20170830
  Serious: Yes (Death, Hospitalization, Other)
  Sender: FDA-Public Use
  Company Number: AR-ABBVIE-17P-007-1850337-00

PATIENT
  Sex: Female

DRUGS (1)
  1. VENCLEXTA [Suspect]
     Active Substance: VENETOCLAX
     Indication: PRODUCT USED FOR UNKNOWN INDICATION
     Route: 048
     Dates: start: 20161220, end: 20170109

REACTIONS (8)
  - Mucormycosis [Unknown]
  - Injury [Unknown]
  - Nuclear magnetic resonance imaging abnormal [Unknown]
  - Death [Fatal]
  - Ischaemic stroke [Unknown]
  - Hemiplegia [Unknown]
  - Ataxia [Unknown]
  - Infection [Unknown]

NARRATIVE: CASE EVENT DATE: 20170121
